FAERS Safety Report 5053228-4 (Version None)
Quarter: 2006Q3

REPORT INFORMATION
  Report Type: 
  Country: None (occurrence: None)
  Receive Date: 20060712
  Receipt Date: 20060623
  Transmission Date: 20061208
  Serious: Yes (Other)
  Sender: FDA-Public Use
  Company Number: US200601001099

PATIENT
  Age: 52 Year
  Sex: Female
  Weight: 117.9 kg

DRUGS (15)
  1. ZYPREXA [Suspect]
     Indication: SCHIZOPHRENIA
     Dosage: 10 MG, ORAL; SEE IMAGE
     Route: 048
     Dates: start: 19971015, end: 20040101
  2. ZYPREXA [Suspect]
     Indication: SCHIZOPHRENIA
     Dosage: 10 MG, ORAL; SEE IMAGE
     Route: 048
     Dates: start: 19980101
  3. PAXIL [Concomitant]
  4. BUSPAR /AUS/ (BUSPIRONE HYDROCHLORIDE) [Concomitant]
  5. EFFEXOR XR [Concomitant]
  6. GLUCOPHAGE ^UNS^ (METFORMIN HYDROCHLORIDE) [Concomitant]
  7. SEROQUEL [Concomitant]
  8. HYZAAR [Concomitant]
  9. LEXAPRO /USA/ (ESCITALOPRAM) [Concomitant]
  10. VENTOLIN /00139501/ (SALBUTAMOL) [Concomitant]
  11. ZESTRIL /USA/ (LISINOPRIL) [Concomitant]
  12. SINGULAIR [Concomitant]
  13. DETROL [Concomitant]
  14. COMBIVENT /GFR/ (IPRATROPIUM BROMIDE, SALBUTAMOL SULFATE) [Concomitant]
  15. ZYRTEC [Concomitant]

REACTIONS (13)
  - ALANINE AMINOTRANSFERASE INCREASED [None]
  - ASPARTATE AMINOTRANSFERASE INCREASED [None]
  - BLOOD GLUCOSE INCREASED [None]
  - CATARACT [None]
  - CHOLELITHIASIS [None]
  - CREATININE RENAL CLEARANCE DECREASED [None]
  - DIABETES MELLITUS NON-INSULIN-DEPENDENT [None]
  - GLYCOSYLATED HAEMOGLOBIN INCREASED [None]
  - HEPATIC STEATOSIS [None]
  - HYPERCHOLESTEROLAEMIA [None]
  - HYPERTRIGLYCERIDAEMIA [None]
  - POLYCYTHAEMIA [None]
  - WEIGHT INCREASED [None]
